FAERS Safety Report 8016400-7 (Version None)
Quarter: 2011Q4

REPORT INFORMATION
  Report Type: 
  Country: None (occurrence: None)
  Receive Date: 20111230
  Receipt Date: 20111221
  Transmission Date: 20120403
  Serious: Yes (Hospitalization, Other)
  Sender: FDA-Public Use
  Company Number: FR-ELI_LILLY_AND_COMPANY-FR201112006005

PATIENT
  Sex: Male

DRUGS (4)
  1. XANAX [Concomitant]
  2. TEGRETOL [Concomitant]
  3. OLANZAPINE [Suspect]
     Dosage: UNK
  4. ACARBOSE [Concomitant]
     Indication: TYPE 2 DIABETES MELLITUS

REACTIONS (6)
  - HYPONATRAEMIA [None]
  - HYPERTHERMIA [None]
  - INAPPROPRIATE ANTIDIURETIC HORMONE SECRETION [None]
  - SPEECH DISORDER [None]
  - PSOAS ABSCESS [None]
  - ADRENAL MASS [None]
